FAERS Safety Report 10713106 (Version 3)
Quarter: 2015Q2

REPORT INFORMATION
  Report Type: Spontaneous
  Country: US (occurrence: US)
  Receive Date: 20150115
  Receipt Date: 20150626
  Transmission Date: 20150821
  Serious: Yes (Death, Hospitalization, Other)
  Sender: FDA-Public Use
  Company Number: US-ELI_LILLY_AND_COMPANY-US201501003561

PATIENT
  Age: 46 Year
  Sex: Male
  Weight: 95.24 kg

DRUGS (13)
  1. LEVOTHYROXINE [Concomitant]
     Active Substance: LEVOTHYROXINE
     Indication: HYPOTHYROIDISM
     Dosage: UNK, UNKNOWN
     Route: 065
     Dates: start: 2009, end: 2014
  2. HYDROCODONE [Concomitant]
     Active Substance: HYDROCODONE
     Indication: PAIN
     Dosage: UNK
     Route: 065
     Dates: start: 2001, end: 2014
  3. FUROSEMIDE. [Concomitant]
     Active Substance: FUROSEMIDE
     Indication: DIURETIC THERAPY
     Dosage: UNK
     Route: 065
     Dates: start: 2011, end: 2014
  4. ANDROGEL [Suspect]
     Active Substance: TESTOSTERONE
     Indication: BLOOD TESTOSTERONE DECREASED
     Dosage: UNK UNK, QD
     Route: 065
     Dates: start: 2012, end: 2014
  5. ONDANSETRON [Concomitant]
     Active Substance: ONDANSETRON
     Indication: NAUSEA
     Dosage: UNK
     Route: 065
     Dates: start: 2012
  6. AXIRON [Suspect]
     Active Substance: TESTOSTERONE
     Indication: BLOOD TESTOSTERONE DECREASED
     Dosage: UNK UNK, QD
     Route: 065
     Dates: start: 2012, end: 2014
  7. CARVEDILOL. [Concomitant]
     Active Substance: CARVEDILOL
     Indication: BLOOD PRESSURE
     Dosage: UNK
     Route: 065
     Dates: start: 2011, end: 2014
  8. OMEPRAZOLE. [Concomitant]
     Active Substance: OMEPRAZOLE
     Indication: GASTROINTESTINAL DISORDER
     Dosage: UNK, UNKNOWN
     Route: 065
     Dates: start: 2011, end: 2014
  9. DIAZEPAM. [Concomitant]
     Active Substance: DIAZEPAM
     Indication: PRODUCT USED FOR UNKNOWN INDICATION
     Dosage: UNK
     Route: 065
     Dates: start: 2007, end: 2014
  10. LISINOPRIL. [Concomitant]
     Active Substance: LISINOPRIL
     Indication: BLOOD PRESSURE
     Dosage: UNK, UNKNOWN
     Route: 065
     Dates: start: 2009, end: 2014
  11. PLAVIX [Concomitant]
     Active Substance: CLOPIDOGREL BISULFATE
     Indication: COAGULOPATHY
     Dosage: UNK, UNKNOWN
     Route: 065
     Dates: start: 2011, end: 2012
  12. GABAPENTINA [Concomitant]
     Active Substance: GABAPENTIN
     Indication: PRODUCT USED FOR UNKNOWN INDICATION
     Dosage: UNK
     Route: 065
     Dates: start: 2011, end: 2014
  13. SIMVASTATIN. [Concomitant]
     Active Substance: SIMVASTATIN
     Indication: BLOOD CHOLESTEROL
     Dosage: UNK
     Dates: start: 2012, end: 2014

REACTIONS (10)
  - Cardiac failure congestive [Unknown]
  - Hypoxic-ischaemic encephalopathy [Fatal]
  - Left ventricular dysfunction [Unknown]
  - Myocardial infarction [Unknown]
  - Cerebrovascular accident [Unknown]
  - Multi-organ failure [Fatal]
  - Acute myocardial infarction [Unknown]
  - Hemiparesis [Unknown]
  - Cardio-respiratory arrest [Fatal]
  - Shock [Fatal]

NARRATIVE: CASE EVENT DATE: 20130110
